FAERS Safety Report 15401629 (Version 1)
Quarter: 2018Q3

REPORT INFORMATION
  Report Type: Spontaneous
  Country: US (occurrence: US)
  Receive Date: 20180919
  Receipt Date: 20180919
  Transmission Date: 20181010
  Serious: No
  Sender: FDA-Public Use
  Company Number: US-PFIZER INC-2018376728

PATIENT
  Age: 68 Year
  Sex: Male
  Weight: 97.51 kg

DRUGS (2)
  1. METFORMIN [Concomitant]
     Active Substance: METFORMIN HYDROCHLORIDE
     Dosage: UNK
  2. SUTENT [Suspect]
     Active Substance: SUNITINIB MALATE
     Dosage: 50 MG, CYCLIC (DAILY 1?28 DAYS)
     Route: 048
     Dates: start: 20180906

REACTIONS (2)
  - Fatigue [Unknown]
  - Diarrhoea [Unknown]
